FAERS Safety Report 5342608-5 (Version None)
Quarter: 2007Q2

REPORT INFORMATION
  Report Type: 
  Country: None (occurrence: None)
  Receive Date: 20070601
  Receipt Date: 20070524
  Transmission Date: 20071010
  Serious: Yes (Other)
  Sender: FDA-Public Use
  Company Number: FR-PFIZER INC-2007033718

PATIENT
  Sex: Male
  Weight: 70 kg

DRUGS (9)
  1. LYRICA [Suspect]
     Indication: NEURALGIA
     Route: 048
     Dates: start: 20070524, end: 20070501
  2. LYRICA [Suspect]
     Indication: PAIN
  3. SKENAN [Concomitant]
     Route: 048
  4. ENALAPRIL MALEATE [Concomitant]
     Indication: HYPERTENSION
     Dosage: DAILY DOSE:20MG
     Route: 048
  5. ESIDRIX [Concomitant]
     Indication: HYPERTENSION
     Dosage: DAILY DOSE:25MG
     Route: 048
  6. METFORMIN HCL [Concomitant]
     Indication: DIABETES MELLITUS
     Route: 048
  7. GLICLAZIDE [Concomitant]
     Indication: DIABETES MELLITUS
     Dosage: DAILY DOSE:30MG
     Route: 048
  8. ACTOS [Concomitant]
     Indication: DIABETES MELLITUS
     Dosage: DAILY DOSE:15MG
     Route: 048
  9. KARDEGIC [Concomitant]
     Indication: ANTICOAGULANT THERAPY
     Dosage: DAILY DOSE:160MG
     Route: 048

REACTIONS (3)
  - FALL [None]
  - SOMNOLENCE [None]
  - SPEECH DISORDER [None]
